FAERS Safety Report 8298035-4 (Version None)
Quarter: 2012Q2

REPORT INFORMATION
  Report Type: 
  Country: None (occurrence: None)
  Receive Date: 20120419
  Receipt Date: 20120417
  Transmission Date: 20120825
  Serious: No
  Sender: FDA-Public Use
  Company Number: US-B.I. PHARMACEUTICALS,INC./RIDGEFIELD-2011-BP-08580BP

PATIENT
  Sex: Male

DRUGS (12)
  1. GLIPIZIDE [Concomitant]
     Indication: DIABETES MELLITUS
  2. HYDROCHLOROTHIAZIDE [Concomitant]
     Indication: HYPERTENSION
  3. NORVASC [Concomitant]
     Indication: HYPERTENSION
  4. SIMVASTATIN [Concomitant]
     Indication: BLOOD CHOLESTEROL INCREASED
  5. PRADAXA [Suspect]
     Indication: ATRIAL FIBRILLATION
     Dosage: 300 MG
     Route: 048
     Dates: start: 20101101
  6. ENALAPRIL MALEATE [Concomitant]
     Indication: HYPERTENSION
  7. POTASSIUM CITRATE [Concomitant]
     Indication: SUPPLEMENTATION THERAPY
     Dosage: 20 MEQ
     Route: 048
  8. ALLOPURINOL [Concomitant]
     Indication: GOUT
  9. METFORMIN HCL [Concomitant]
     Indication: DIABETES MELLITUS
  10. ATENOLOL [Concomitant]
     Indication: HYPERTENSION
  11. LOVAZA [Concomitant]
     Route: 048
  12. ASPIRIN [Concomitant]
     Indication: PROPHYLAXIS
     Dosage: 81 MG
     Route: 048

REACTIONS (3)
  - DYSGEUSIA [None]
  - GINGIVAL BLEEDING [None]
  - MOUTH HAEMORRHAGE [None]
